FAERS Safety Report 24701429 (Version 1)
Quarter: 2024Q4

REPORT INFORMATION
  Report Type: Spontaneous
  Country: US (occurrence: US)
  Receive Date: 20241205
  Receipt Date: 20241205
  Transmission Date: 20250114
  Serious: Yes (Hospitalization)
  Sender: NOVO NORDISK
  Company Number: US-NOVOPROD-1326772

PATIENT
  Sex: Female

DRUGS (3)
  1. OZEMPIC [Suspect]
     Active Substance: SEMAGLUTIDE
     Indication: Diabetes mellitus
     Dosage: 1 MG
     Route: 058
  2. REPAGLINIDE [Concomitant]
     Active Substance: DULOXETINE HYDROCHLORIDE\REPAGLINIDE\TICAGRELOR
     Indication: Diabetes mellitus
     Dosage: UNK
  3. HYDROCHLOROTHIAZIDE\LISINOPRIL [Suspect]
     Active Substance: HYDROCHLOROTHIAZIDE\LISINOPRIL
     Indication: Hypertension
     Dosage: UNK

REACTIONS (2)
  - Blood sodium decreased [Recovered/Resolved]
  - Asthenia [Recovered/Resolved]
